FAERS Safety Report 5951322-4 (Version None)
Quarter: 2008Q4

REPORT INFORMATION
  Report Type: 
  Country: None (occurrence: None)
  Receive Date: 20081113
  Receipt Date: 20081031
  Transmission Date: 20090506
  Serious: Yes (Hospitalization)
  Sender: FDA-Public Use
  Company Number: US-BIOGENIDEC-2008BI022958

PATIENT
  Age: 27 Year
  Sex: Male
  Weight: 113 kg

DRUGS (7)
  1. TYSABRI [Suspect]
     Indication: MULTIPLE SCLEROSIS
     Route: 042
     Dates: start: 20080502, end: 20080725
  2. LISINOPRIL [Concomitant]
     Indication: HYPERTENSION
  3. SYNTHROID [Concomitant]
     Indication: HYPOTHYROIDISM
  4. GLYBURIDE [Concomitant]
     Indication: HYPERGLYCAEMIA
  5. PROVIGIL [Concomitant]
  6. KLONOPIN [Concomitant]
     Indication: TREMOR
  7. FLEXERIL [Concomitant]
     Indication: MUSCLE SPASMS

REACTIONS (5)
  - ABNORMAL BEHAVIOUR [None]
  - ANAPHYLACTIC REACTION [None]
  - DRUG INEFFECTIVE [None]
  - HEMIPARESIS [None]
  - HYPERSENSITIVITY [None]
